FAERS Safety Report 9051892 (Version 1)
Quarter: 2013Q1

REPORT INFORMATION
  Report Type: Spontaneous
  Country: JP (occurrence: JP)
  Receive Date: 20130207
  Receipt Date: 20130207
  Transmission Date: 20140127
  Serious: Yes (Life-Threatening, Other)
  Sender: FDA-Public Use
  Company Number: JP-AMGEN-JPNSP2013003156

PATIENT
  Age: 52 Year
  Sex: Male
  Weight: 53 kg

DRUGS (16)
  1. SENSIPAR [Suspect]
     Indication: HYPERPARATHYROIDISM SECONDARY
     Dosage: 25 MG, UNK
     Route: 048
  2. BAYASPIRIN [Suspect]
     Dosage: 100 MG, QD
     Route: 048
     Dates: start: 20080723, end: 20130111
  3. PROTECADIN [Suspect]
     Indication: GASTRIC ULCER
     Dosage: 10 MG, BID
     Route: 048
     Dates: start: 20100908, end: 20130122
  4. AMLODIPINE [Suspect]
     Indication: HYPERTENSION
     Dosage: 5 MG, BID
     Route: 048
     Dates: start: 20030604, end: 20130122
  5. ALLOPURINOL [Suspect]
     Indication: HYPERURICAEMIA
     Dosage: 100 MG, QD
     Route: 048
     Dates: start: 20030604, end: 20130122
  6. OLMETEC [Suspect]
     Indication: HYPERTENSION
     Dosage: 40 MG, QD
     Route: 048
     Dates: start: 20120123, end: 20130122
  7. ARTIST [Suspect]
     Indication: HYPERTENSION
     Dosage: 2.5 MG, BID
     Route: 048
     Dates: start: 20110822, end: 20130122
  8. CORINAEL [Suspect]
     Indication: HYPERTENSION
     Dosage: UNK UNK, QID
     Route: 048
     Dates: start: 20110822, end: 20130122
  9. WYTENSIN [Suspect]
     Indication: HYPERTENSION
     Dosage: 4 MG, BID
     Route: 048
     Dates: end: 20130122
  10. CALTAN [Concomitant]
     Indication: HYPERPHOSPHATAEMIA
     Dosage: 500 MG, TID
     Route: 048
     Dates: end: 20130122
  11. CHOLEBINE [Concomitant]
     Indication: HYPERLIPIDAEMIA
     Dosage: 1000 MG, BID
     Route: 048
     Dates: start: 20050518, end: 20130122
  12. ARGAMATE [Concomitant]
     Indication: HYPERKALAEMIA
     Dosage: 25 MG, UNK
     Route: 048
     Dates: start: 20070523, end: 20130122
  13. FOSRENOL [Concomitant]
     Indication: HYPERPHOSPHATAEMIA
     Dosage: 750 MG, TID
     Route: 048
     Dates: start: 20090724, end: 20130122
  14. RENAGEL [Concomitant]
     Indication: HYPERPHOSPHATAEMIA
     Dosage: 1500 MG, QD
     Route: 048
     Dates: start: 20030903, end: 20130122
  15. OXAROL [Concomitant]
     Indication: HYPERPARATHYROIDISM SECONDARY
     Dosage: 25 MUG, 3X/WEEK
     Route: 040
     Dates: end: 20130123
  16. MIRCERA [Concomitant]
     Indication: NEPHROGENIC ANAEMIA
     Dosage: 150 MUG, 1X/MONTH
     Route: 040
     Dates: start: 20111212

REACTIONS (4)
  - Thrombocytopenia [Recovering/Resolving]
  - Eosinophilia [Recovering/Resolving]
  - Hepatitis cholestatic [Recovering/Resolving]
  - Rash [Recovered/Resolved]
